FAERS Safety Report 6144957-X (Version None)
Quarter: 2009Q2

REPORT INFORMATION
  Report Type: 
  Country: None (occurrence: None)
  Receive Date: 20090406
  Receipt Date: 20090211
  Transmission Date: 20091009
  Serious: Yes (Hospitalization)
  Sender: FDA-Public Use
  Company Number: US-PFIZER INC-2008070615

PATIENT
  Sex: Female
  Weight: 103 kg

DRUGS (3)
  1. CP-945,598 [Suspect]
     Indication: WEIGHT DECREASED
     Dosage: UNK
     Route: 048
     Dates: start: 20070723, end: 20080521
  2. TAMIFLU [Concomitant]
     Indication: INFLUENZA
     Dates: start: 20080130
  3. NUVARING [Concomitant]
     Indication: CONTRACEPTION
     Dosage: 1 UNIT
     Dates: start: 20050101

REACTIONS (1)
  - GUILLAIN-BARRE SYNDROME [None]
